FAERS Safety Report 5407200-2 (Version None)
Quarter: 2007Q3

REPORT INFORMATION
  Report Type: 
  Country: None (occurrence: None)
  Receive Date: 20070807
  Receipt Date: 20070801
  Transmission Date: 20080115
  Serious: Yes (Hospitalization, Other)
  Sender: FDA-Public Use
  Company Number: A0657206A

PATIENT
  Age: 34 Year
  Sex: Male
  Weight: 106.8 kg

DRUGS (2)
  1. AVANDAMET [Suspect]
     Route: 048
     Dates: start: 20070101
  2. LANTUS [Concomitant]
     Dosage: 10UNIT AT NIGHT
     Route: 058
     Dates: start: 20070201

REACTIONS (2)
  - BLOOD CREATININE INCREASED [None]
  - INTENTIONAL OVERDOSE [None]
